FAERS Safety Report 12625498 (Version 1)
Quarter: 2016Q3

REPORT INFORMATION
  Report Type: Spontaneous
  Country: GB (occurrence: GB)
  Receive Date: 20160805
  Receipt Date: 20160805
  Transmission Date: 20161109
  Serious: Yes (Disabling)
  Sender: FDA-Public Use
  Company Number: GB-TEVA-681010ACC

PATIENT
  Age: 36 Year
  Sex: Female
  Weight: 83 kg

DRUGS (14)
  1. FLUTICASONE [Concomitant]
     Active Substance: FLUTICASONE\FLUTICASONE PROPIONATE
     Dosage: 4 DOSAGE FORMS DAILY;
     Route: 055
     Dates: start: 20160318, end: 20160503
  2. LANSOPRAZOLE. [Concomitant]
     Active Substance: LANSOPRAZOLE
     Indication: ULCER
     Dosage: 1 DOSAGE FORMS DAILY;
     Dates: start: 20160711
  3. DOXYCYCLINE. [Concomitant]
     Active Substance: DOXYCYCLINE
     Dosage: TWO NOW THEN ONE DAILY
     Dates: start: 20160513, end: 20160520
  4. PIZOTIFEN [Concomitant]
     Active Substance: PIZOTYLINE
     Indication: MIGRAINE PROPHYLAXIS
     Dosage: UP TO THREE TO BE TAKEN AT NIGHT
     Dates: start: 20160519, end: 20160616
  5. MONTELUKAST [Suspect]
     Active Substance: MONTELUKAST SODIUM
     Dates: start: 20160420
  6. CITALOPRAM [Concomitant]
     Active Substance: CITALOPRAM HYDROBROMIDE
     Dosage: 1 DOSAGE FORMS DAILY; AT NIGHT
     Dates: start: 20160318
  7. PREDNISOLONE. [Concomitant]
     Active Substance: PREDNISOLONE
     Dosage: USE AS DIRECTED
     Dates: start: 20160616, end: 20160623
  8. CLARITHROMYCIN. [Concomitant]
     Active Substance: CLARITHROMYCIN
     Indication: INFECTION
     Dosage: 2 DOSAGE FORMS DAILY;
     Dates: start: 20160607, end: 20160614
  9. SERETIDE [Concomitant]
     Active Substance: FLUTICASONE PROPIONATE\SALMETEROL XINAFOATE
     Dosage: 4 DOSAGE FORMS DAILY;
     Route: 055
     Dates: start: 20160503, end: 20160713
  10. CETIRIZINE [Concomitant]
     Active Substance: CETIRIZINE HYDROCHLORIDE
     Dosage: 1 DOSAGE FORMS DAILY;
     Dates: start: 20160711
  11. HYDROXOCOBALAMIN [Concomitant]
     Active Substance: HYDROXOCOBALAMIN
     Dosage: USE AS DIRECTED
     Dates: start: 20160704
  12. SALBUTAMOL [Concomitant]
     Active Substance: ALBUTEROL
     Dosage: 6 DOSAGE FORMS DAILY; WHEN REQUIRED
     Dates: start: 20160318
  13. SYMBICORT [Concomitant]
     Active Substance: BUDESONIDE\FORMOTEROL FUMARATE DIHYDRATE
     Dosage: ONE OR TWO PUFFS TWICE A DAY TO CONTROL...
     Route: 055
     Dates: start: 20160711
  14. AMOXICILLIN. [Concomitant]
     Active Substance: AMOXICILLIN
     Dosage: 3 DOSAGE FORMS DAILY;
     Dates: start: 20160711

REACTIONS (2)
  - Wheezing [Recovered/Resolved]
  - Condition aggravated [Recovered/Resolved]

NARRATIVE: CASE EVENT DATE: 20160519
